FAERS Safety Report 25985021 (Version 1)
Quarter: 2025Q4

REPORT INFORMATION
  Report Type: Spontaneous
  Country: US (occurrence: US)
  Receive Date: 20251031
  Receipt Date: 20251031
  Transmission Date: 20260118
  Serious: No
  Sender: FRESENIUS KABI
  Company Number: US-FreseniusKabi-FK202514408

PATIENT
  Age: 27 Year
  Sex: Female
  Weight: 73 kg

DRUGS (1)
  1. TYENNE [Suspect]
     Active Substance: TOCILIZUMAB-AAZG
     Indication: Rheumatoid arthritis
     Dosage: FOA: INJECTION?ROA: SUBCUTANEOUS?LATEST DOSE WAS RECEIVED ON 18OCT2025
     Route: 058
     Dates: start: 202505

REACTIONS (1)
  - Herpes zoster cutaneous disseminated [Not Recovered/Not Resolved]

NARRATIVE: CASE EVENT DATE: 20251016
